FAERS Safety Report 11919572 (Version 1)
Quarter: 2016Q1

REPORT INFORMATION
  Report Type: Spontaneous
  Country: US (occurrence: None)
  Receive Date: 20160114
  Receipt Date: 20160114
  Transmission Date: 20160526
  Serious: Yes (Life-Threatening, Hospitalization)
  Sender: FDA-Public Use
  Company Number: None

PATIENT
  Age: 63 Year
  Sex: Male
  Weight: 78.47 kg

DRUGS (15)
  1. VITAMIN B12 [Concomitant]
     Active Substance: CYANOCOBALAMIN
  2. HUMALIN R INSULIN [Concomitant]
  3. AZITHROMYCIN ANHYDROUS. [Suspect]
     Active Substance: AZITHROMYCIN ANHYDROUS
     Indication: SINUSITIS
     Dosage: 2 PILLS THEN 1 FOR 5 DAYS, 2 PILLS FIRST DAYS
     Route: 048
     Dates: start: 20160101, end: 20160105
  4. ASPIRIN. [Concomitant]
     Active Substance: ASPIRIN
  5. CALCITRIOLE [Concomitant]
  6. ISOSORBIDE MN ER [Concomitant]
     Active Substance: ISOSORBIDE
  7. OMEGA FISH OIL [Concomitant]
     Active Substance: FISH OIL\OMEGA-3 FATTY ACIDS
  8. PROBIOTICS [Concomitant]
     Active Substance: PROBIOTICS NOS
  9. CALCIUM WITH VITAMIN D [Concomitant]
     Active Substance: CALCIUM\VITAMIN D
  10. FUROSOMIDE [Concomitant]
  11. HYDRALAZINE [Concomitant]
     Active Substance: HYDRALAZINE HYDROCHLORIDE
  12. COQ10 [Concomitant]
     Active Substance: UBIDECARENONE
  13. HUMALIN N INSULIN [Concomitant]
  14. LOVASTATIN. [Concomitant]
     Active Substance: LOVASTATIN
  15. DOXAZOSIN [Concomitant]
     Active Substance: DOXAZOSIN\DOXAZOSIN MESYLATE

REACTIONS (6)
  - Insomnia [None]
  - Dyspnoea [None]
  - Fatigue [None]
  - Myocardial infarction [None]
  - Dehydration [None]
  - Hallucination [None]

NARRATIVE: CASE EVENT DATE: 20160107
